FAERS Safety Report 12628697 (Version 3)
Quarter: 2016Q3

REPORT INFORMATION
  Report Type: Spontaneous
  Country: US (occurrence: US)
  Receive Date: 20160808
  Receipt Date: 20160808
  Transmission Date: 20161109
  Serious: No
  Sender: FDA-Public Use
  Company Number: US-BEH-2016062276

PATIENT
  Sex: Female
  Weight: 83 kg

DRUGS (34)
  1. HIZENTRA [Suspect]
     Active Substance: HUMAN IMMUNOGLOBULIN G
     Indication: IMMUNODEFICIENCY COMMON VARIABLE
     Route: 058
  2. HIZENTRA [Suspect]
     Active Substance: HUMAN IMMUNOGLOBULIN G
     Indication: SELECTIVE IGM IMMUNODEFICIENCY
     Route: 058
     Dates: start: 20110822
  3. DIPHENHYDRAMINE. [Concomitant]
     Active Substance: DIPHENHYDRAMINE
  4. METFORMIN [Concomitant]
     Active Substance: METFORMIN HYDROCHLORIDE
  5. FAMOTIDINE. [Concomitant]
     Active Substance: FAMOTIDINE
  6. ASPIRIN. [Concomitant]
     Active Substance: ASPIRIN
  7. ELMIRON [Concomitant]
     Active Substance: PENTOSAN POLYSULFATE SODIUM
  8. PREDNISONE. [Concomitant]
     Active Substance: PREDNISONE
  9. LEVOTHYROXINE. [Concomitant]
     Active Substance: LEVOTHYROXINE
  10. CALCIUM [Concomitant]
     Active Substance: CALCIUM
  11. HIZENTRA [Suspect]
     Active Substance: HUMAN IMMUNOGLOBULIN G
     Indication: SELECTIVE IGG SUBCLASS DEFICIENCY
     Route: 058
  12. LOPRESSOR [Concomitant]
     Active Substance: METOPROLOL TARTRATE
  13. SIMVASTATIN. [Concomitant]
     Active Substance: SIMVASTATIN
  14. VIVELLE [Concomitant]
     Active Substance: ESTRADIOL
  15. PROMETRIUM [Concomitant]
     Active Substance: PROGESTERONE
  16. GLUCOSA [Concomitant]
  17. ACIPHEX [Concomitant]
     Active Substance: RABEPRAZOLE SODIUM
  18. METHENAMINE [Concomitant]
     Active Substance: METHENAMINE
  19. FISH OIL [Concomitant]
     Active Substance: FISH OIL
  20. COZAAR [Concomitant]
     Active Substance: LOSARTAN POTASSIUM
  21. POLY-IRON [Concomitant]
     Active Substance: IRON
  22. SUPER B COMPLEX [Concomitant]
     Active Substance: CYANOCOBALAMIN\DEXPANTHENOL\NIACINAMIDE\PYRIDOXINE HYDROCHLORIDE\RIBOFLAVIN 5^-PHOSPHATE SODIUM\THIAMINE HYDROCHLORIDE\VITAMIN B COMPLEX
  23. HYDROXYZINE [Concomitant]
     Active Substance: HYDROXYZINE\HYDROXYZINE HYDROCHLORIDE
  24. ERYTHROMYCIN. [Concomitant]
     Active Substance: ERYTHROMYCIN
  25. CYMBALTA [Concomitant]
     Active Substance: DULOXETINE HYDROCHLORIDE
  26. LOSARTAN. [Concomitant]
     Active Substance: LOSARTAN
  27. FLONASE [Concomitant]
     Active Substance: FLUTICASONE PROPIONATE
  28. VITAMIN E [Concomitant]
     Active Substance: .ALPHA.-TOCOPHEROL
  29. PRIMROSE [Concomitant]
  30. PREMARIN [Concomitant]
     Active Substance: ESTROGENS, CONJUGATED
  31. FEXOFENADINE [Concomitant]
     Active Substance: FEXOFENADINE\FEXOFENADINE HYDROCHLORIDE
  32. ONE A DAY [Concomitant]
  33. EPIPEN [Concomitant]
     Active Substance: EPINEPHRINE
  34. ALLEGRA [Concomitant]
     Active Substance: FEXOFENADINE HYDROCHLORIDE

REACTIONS (1)
  - Sinusitis [Unknown]
